FAERS Safety Report 5639152-4 (Version None)
Quarter: 2008Q1

REPORT INFORMATION
  Report Type: 
  Country: None (occurrence: None)
  Receive Date: 20080226
  Receipt Date: 20080214
  Transmission Date: 20080703
  Serious: Yes (Hospitalization, Other)
  Sender: FDA-Public Use
  Company Number: US-ELI_LILLY_AND_COMPANY-US200802003140

PATIENT
  Sex: Female

DRUGS (1)
  1. FORTEO [Suspect]
     Dosage: UNK, EACH MORNING
     Dates: start: 20080116

REACTIONS (10)
  - CARDIOVASCULAR DISORDER [None]
  - DIZZINESS [None]
  - EAR DISORDER [None]
  - FALL [None]
  - HAEMATOMA [None]
  - HAND FRACTURE [None]
  - HOSPITALISATION [None]
  - LACERATION [None]
  - LOSS OF CONSCIOUSNESS [None]
  - SINUSITIS [None]
